FAERS Safety Report 22397424 (Version 1)
Quarter: 2023Q2

REPORT INFORMATION
  Report Type: Report from Study
  Country: BR (occurrence: BR)
  Receive Date: 20230602
  Receipt Date: 20230602
  Transmission Date: 20230722
  Serious: Yes (Other)
  Sender: FDA-Public Use
  Company Number: BR-JNJFOC-20230561963

PATIENT
  Age: 48 Year
  Sex: Female
  Weight: 68 kg

DRUGS (3)
  1. SIMPONI [Suspect]
     Active Substance: GOLIMUMAB
     Indication: Ankylosing spondylitis
     Route: 058
     Dates: start: 20230301
  2. SIMPONI [Suspect]
     Active Substance: GOLIMUMAB
  3. PREGABALIN [Concomitant]
     Active Substance: PREGABALIN
     Dosage: EVERY NIGHT

REACTIONS (7)
  - Loss of consciousness [Unknown]
  - Vertigo [Unknown]
  - Dysgeusia [Unknown]
  - Peripheral swelling [Unknown]
  - Mobility decreased [Unknown]
  - Pain in extremity [Unknown]
  - Infection [Unknown]
